FAERS Safety Report 18173945 (Version 1)
Quarter: 2020Q3

REPORT INFORMATION
  Report Type: Spontaneous
  Country: US (occurrence: US)
  Receive Date: 20200819
  Receipt Date: 20200819
  Transmission Date: 20201103
  Serious: No
  Sender: FDA-Public Use
  Company Number: None

PATIENT
  Age: 73 Year
  Sex: Female
  Weight: 79.29 kg

DRUGS (15)
  1. LORATADINE. [Concomitant]
     Active Substance: LORATADINE
  2. ASPIRIN. [Concomitant]
     Active Substance: ASPIRIN
  3. LEVAQUIN [Concomitant]
     Active Substance: LEVOFLOXACIN
  4. TYLENOL [Concomitant]
     Active Substance: ACETAMINOPHEN
  5. DECITABINE. [Suspect]
     Active Substance: DECITABINE
     Indication: ACUTE MYELOID LEUKAEMIA
     Dosage: ?          OTHER FREQUENCY:AS DIRECTED;?
     Route: 043
     Dates: start: 20191213, end: 20200819
  6. CALCIUM [Concomitant]
     Active Substance: CALCIUM
  7. SINGULAIR [Concomitant]
     Active Substance: MONTELUKAST SODIUM
  8. RAMIPRIL. [Concomitant]
     Active Substance: RAMIPRIL
  9. PRAVASTATIN. [Concomitant]
     Active Substance: PRAVASTATIN
  10. DULOXETINE. [Concomitant]
     Active Substance: DULOXETINE
  11. VORICONAZOLE. [Suspect]
     Active Substance: VORICONAZOLE
     Indication: ACUTE MYELOID LEUKAEMIA
     Route: 048
     Dates: start: 20200428, end: 20200819
  12. TESSALON [Concomitant]
     Active Substance: BENZONATATE
  13. PROCHLORPERAZINE. [Concomitant]
     Active Substance: PROCHLORPERAZINE
  14. ALLOPURINOL. [Concomitant]
     Active Substance: ALLOPURINOL
  15. PROBIOTIC [Concomitant]
     Active Substance: PROBIOTICS NOS

REACTIONS (1)
  - Hospice care [None]

NARRATIVE: CASE EVENT DATE: 20200819
